FAERS Safety Report 25073247 (Version 2)
Quarter: 2025Q1

REPORT INFORMATION
  Report Type: Report from Study
  Country: US (occurrence: US)
  Receive Date: 20250313
  Receipt Date: 20250319
  Transmission Date: 20250408
  Serious: Yes (Hospitalization, Other)
  Sender: GILEAD
  Company Number: US-GILEAD-2025-0706692

PATIENT
  Sex: Male

DRUGS (6)
  1. AMBRISENTAN [Suspect]
     Active Substance: AMBRISENTAN
     Indication: Pulmonary arterial hypertension
     Dosage: 10 MG, QD
     Route: 065
     Dates: start: 20220930
  2. TADALAFIL [Concomitant]
     Active Substance: TADALAFIL
  3. ELIQUIS [Concomitant]
     Active Substance: APIXABAN
  4. TYVASO [Concomitant]
     Active Substance: TREPROSTINIL
  5. ORENITRAM [Concomitant]
     Active Substance: TREPROSTINIL
  6. EPOPROSTENOL [Concomitant]
     Active Substance: EPOPROSTENOL
     Route: 042

REACTIONS (2)
  - Cardiogenic shock [Unknown]
  - Hypoxia [Unknown]
